FAERS Safety Report 15500854 (Version 3)
Quarter: 2018Q4

REPORT INFORMATION
  Report Type: Spontaneous
  Country: RU (occurrence: RU)
  Receive Date: 20181015
  Receipt Date: 20181031
  Transmission Date: 20190205
  Serious: Yes (Other)
  Sender: FDA-Public Use
  Company Number: PHHY2018RU125474

PATIENT
  Sex: Female

DRUGS (1)
  1. COSENTYX [Suspect]
     Active Substance: SECUKINUMAB
     Indication: ANKYLOSING SPONDYLITIS
     Dosage: UNK UNK, QW (WEEKLY 1 MONTH THEN MONTHLY ONCE)
     Route: 065

REACTIONS (6)
  - Diarrhoea [Unknown]
  - Angina pectoris [Unknown]
  - Drug ineffective [Unknown]
  - Tachycardia [Unknown]
  - Malaise [Unknown]
  - Asthenia [Unknown]
